FAERS Safety Report 6292666-9 (Version None)
Quarter: 2009Q3

REPORT INFORMATION
  Report Type: 
  Country: None (occurrence: None)
  Receive Date: 20090729
  Receipt Date: 20090715
  Transmission Date: 20100115
  Serious: Yes (Disabling, Other)
  Sender: FDA-Public Use
  Company Number: 2009S1012590

PATIENT
  Age: 82 Year
  Sex: Female

DRUGS (1)
  1. ALENDRONATE SODIUM [Suspect]
     Indication: SPINAL FRACTURE
     Dosage: 70 MG;WEEKLY

REACTIONS (2)
  - FIBULA FRACTURE [None]
  - PATHOLOGICAL FRACTURE [None]
